FAERS Safety Report 22196604 (Version 1)
Quarter: 2023Q2

REPORT INFORMATION
  Report Type: Spontaneous
  Country: US (occurrence: US)
  Receive Date: 20230411
  Receipt Date: 20230411
  Transmission Date: 20230722
  Serious: Yes (Hospitalization)
  Sender: FDA-Public Use
  Company Number: US-ROCHE-3323928

PATIENT
  Age: 82 Year
  Sex: Male
  Weight: 63.560 kg

DRUGS (1)
  1. VALGANCICLOVIR HYDROCHLORIDE [Suspect]
     Active Substance: VALGANCICLOVIR HYDROCHLORIDE
     Indication: Prophylaxis against transplant rejection
     Dosage: DAILY DOSE: 450 MILLIGRAM
     Route: 048
     Dates: start: 2012, end: 20230331

REACTIONS (4)
  - Fall [Unknown]
  - Hip fracture [Recovering/Resolving]
  - Product use in unapproved indication [Unknown]
  - Product availability issue [Unknown]

NARRATIVE: CASE EVENT DATE: 20120101
